FAERS Safety Report 4531683-3 (Version None)
Quarter: 2004Q4

REPORT INFORMATION
  Report Type: 
  Country: None (occurrence: None)
  Receive Date: 20041216
  Receipt Date: 20041216
  Transmission Date: 20050328
  Serious: Yes (Other)
  Sender: FDA-Public Use
  Company Number: None

PATIENT
  Sex: Female

DRUGS (2)
  1. CODICLEAR DH [Suspect]
     Indication: CHRONIC OBSTRUCTIVE AIRWAYS DISEASE
     Dosage: 1 - 2 TSP QID PRN
     Route: 048
     Dates: start: 20040907
  2. CODICLEAR DH [Suspect]
     Indication: PSEUDOMONAS INFECTION
     Dosage: 1 - 2 TSP QID PRN
     Route: 048
     Dates: start: 20040907

REACTIONS (2)
  - DRUG INEFFECTIVE [None]
  - PHARMACEUTICAL PRODUCT COMPLAINT [None]
